FAERS Safety Report 11430620 (Version 1)
Quarter: 2015Q3

REPORT INFORMATION
  Report Type: Spontaneous
  Country: US (occurrence: US)
  Receive Date: 20150828
  Receipt Date: 20150828
  Transmission Date: 20151125
  Serious: Yes (Hospitalization)
  Sender: FDA-Public Use
  Company Number: US-ROCHE-1184799

PATIENT
  Age: 59 Year
  Sex: Male

DRUGS (3)
  1. PEGASYS [Suspect]
     Active Substance: PEGINTERFERON ALFA-2A
     Indication: CHRONIC HEPATITIS C
     Route: 065
     Dates: start: 20120824
  2. RIBAVIRIN. [Suspect]
     Active Substance: RIBAVIRIN
     Indication: CHRONIC HEPATITIS C
     Route: 065
  3. BOCEPREVIR [Suspect]
     Active Substance: BOCEPREVIR
     Indication: CHRONIC HEPATITIS C
     Route: 065

REACTIONS (7)
  - Platelet count decreased [Unknown]
  - Myocardial infarction [Unknown]
  - Cardiac infection [Unknown]
  - White blood cell count decreased [Unknown]
  - Abasia [Unknown]
  - Tremor [Unknown]
  - Dyspnoea [Unknown]

NARRATIVE: CASE EVENT DATE: 201209
